FAERS Safety Report 5144402-7 (Version None)
Quarter: 2006Q4

REPORT INFORMATION
  Report Type: 
  Country: None (occurrence: None)
  Receive Date: 20061030
  Receipt Date: 20061018
  Transmission Date: 20070319
  Serious: Yes (Death)
  Sender: FDA-Public Use
  Company Number: 2006114061

PATIENT
  Age: 32 Year
  Sex: Male
  Weight: 99.7913 kg

DRUGS (10)
  1. GEODON [Suspect]
     Indication: MENTAL IMPAIRMENT
     Dosage: 160 MG (80 MG, 2 IN 1 D)
     Dates: end: 20060925
  2. GEODON [Suspect]
     Indication: SCHIZOPHRENIA
     Dosage: 160 MG (80 MG, 2 IN 1 D)
     Dates: end: 20060925
  3. CLOZARIL (CLOZAPRINE) [Concomitant]
  4. HALDOL (DECANOATE HALOPERIDOL) [Concomitant]
  5. PAXIL [Concomitant]
  6. TOPAMAX [Concomitant]
  7. GLIPIZIDE [Concomitant]
  8. LISINOPRIL [Concomitant]
  9. ALL OTHER THERAPEUTIC PRODUCTS (ALL OTHER THERAPEUTIC) [Concomitant]
  10. OXYBUTYNIN (OXBUTYNIN) [Concomitant]

REACTIONS (1)
  - HIGH DENSITY LIPOPROTEIN DECREASED [None]
